FAERS Safety Report 9374038 (Version 1)
Quarter: 2013Q2

REPORT INFORMATION
  Report Type: Spontaneous
  Country: GB (occurrence: GB)
  Receive Date: 20130628
  Receipt Date: 20130628
  Transmission Date: 20140414
  Serious: Yes (Other)
  Sender: FDA-Public Use
  Company Number: GB-009507513-1306GBR011052

PATIENT
  Age: 35 Year
  Sex: Male

DRUGS (1)
  1. PROPECIA 1MG FILM-COATED TABLET [Suspect]
     Indication: ALOPECIA
     Dosage: 1 MG, QD
     Dates: start: 20130418, end: 20130501

REACTIONS (10)
  - Insomnia [Not Recovered/Not Resolved]
  - Penile pain [Not Recovered/Not Resolved]
  - Urinary retention [Not Recovered/Not Resolved]
  - Feeling abnormal [Not Recovered/Not Resolved]
  - Emotional disorder [Not Recovered/Not Resolved]
  - Flat affect [Not Recovered/Not Resolved]
  - Genital rash [Not Recovered/Not Resolved]
  - Erythema [Not Recovered/Not Resolved]
  - Genital discomfort [Not Recovered/Not Resolved]
  - Sexual dysfunction [Not Recovered/Not Resolved]
